FAERS Safety Report 14958460 (Version 1)
Quarter: 2018Q2

REPORT INFORMATION
  Report Type: Spontaneous
  Country: US (occurrence: US)
  Receive Date: 20180531
  Receipt Date: 20180531
  Transmission Date: 20180711
  Serious: Yes (Hospitalization)
  Sender: FDA-Public Use
  Company Number: US-AUROBINDO-AUR-APU-2018-026938

PATIENT

DRUGS (1)
  1. DEXTROMETHORPHAN+PHENYLEPHRINE [Suspect]
     Active Substance: DEXTROMETHORPHAN\PHENYLEPHRINE
     Indication: PRODUCT USED FOR UNKNOWN INDICATION
     Dosage: 8 MILLILITER
     Route: 065
     Dates: start: 20180505

REACTIONS (5)
  - Somnolence [Unknown]
  - False positive investigation result [Unknown]
  - Loss of consciousness [Unknown]
  - Nervousness [Unknown]
  - Vomiting [Unknown]

NARRATIVE: CASE EVENT DATE: 20180505
